FAERS Safety Report 18643430 (Version 1)
Quarter: 2020Q4

REPORT INFORMATION
  Report Type: Spontaneous
  Country: BR (occurrence: BR)
  Receive Date: 20201221
  Receipt Date: 20201221
  Transmission Date: 20210114
  Serious: Yes (Other)
  Sender: FDA-Public Use
  Company Number: BR-AMERICAN REGENT INC-2020002677

PATIENT
  Sex: Female
  Weight: 85 kg

DRUGS (2)
  1. VENOFER [Suspect]
     Active Substance: IRON SUCROSE
     Indication: METABOLIC SURGERY
     Dosage: 100 MG/ 5 ML (1 IN 3 M)
  2. PYRIDOXAMINE HYDROCHLORIDE\THIAMINE HYDROCHLORIDE\CYANOCOBALAMIN [Concomitant]
     Active Substance: CYANOCOBALAMIN\PYRIDOXAMINE HYDROCHLORIDE\THIAMINE HYDROCHLORIDE
     Indication: VITAMIN SUPPLEMENTATION
     Dosage: 5000 MILLIGRAM
     Route: 065
     Dates: start: 2019

REACTIONS (4)
  - Product availability issue [Not Recovered/Not Resolved]
  - Product use in unapproved indication [Unknown]
  - Drug dependence [Not Recovered/Not Resolved]
  - Therapy interrupted [Unknown]
